FAERS Safety Report 8404664-7 (Version None)
Quarter: 2012Q2

REPORT INFORMATION
  Report Type: 
  Country: None (occurrence: None)
  Receive Date: 20120601
  Receipt Date: 20120531
  Transmission Date: 20120825
  Serious: Yes (Hospitalization)
  Sender: FDA-Public Use
  Company Number: DK-AMGEN-DNKSP2012009859

PATIENT
  Age: 78 Year
  Sex: Female
  Weight: 58 kg

DRUGS (13)
  1. PREDNISONE TAB [Concomitant]
     Indication: B-CELL LYMPHOMA
     Dosage: 100 MG, UNK
     Route: 048
     Dates: start: 20120109, end: 20120123
  2. PANTOPRAZOLE [Concomitant]
     Indication: DYSPEPSIA
     Dosage: 40 MG, UNK
     Route: 048
     Dates: start: 20120105
  3. MIRTAZAPINE [Concomitant]
     Indication: DEPRESSION
     Dosage: 15 MG, UNK
     Route: 048
     Dates: start: 20111219
  4. MORPHINE SULFATE [Concomitant]
  5. DOXORUBICIN HCL [Concomitant]
     Indication: B-CELL LYMPHOMA
     Dosage: 88 MG, UNK
     Route: 042
     Dates: start: 20120109
  6. CYCLOPHOSPHAMIDE [Concomitant]
     Indication: B-CELL LYMPHOMA
     Dosage: 1350 MG, UNK
     Route: 042
     Dates: start: 20120109
  7. SIMVASTATIN [Concomitant]
     Indication: BLOOD CHOLESTEROL INCREASED
     Dosage: 40 MG, UNK
     Route: 048
     Dates: start: 20100917
  8. PEGFILGRASTIM [Suspect]
     Indication: B-CELL LYMPHOMA
     Dosage: 6 MG, UNK
     Route: 058
     Dates: start: 20120110
  9. TENORETIC 100 [Concomitant]
     Indication: HYPERTENSION
     Dosage: UNK ABSENT, UNK
     Route: 048
  10. VENLAFAXINE [Concomitant]
     Indication: DEPRESSION
     Dosage: 75 MG, UNK
     Route: 048
     Dates: start: 20120105
  11. VINCRISTINE [Concomitant]
     Indication: B-CELL LYMPHOMA
     Dosage: 2 MG, UNK
     Route: 042
     Dates: start: 20120109, end: 20120123
  12. RITUXIMAB [Concomitant]
     Indication: B-CELL LYMPHOMA
     Dosage: 600 MG, UNK
     Route: 042
     Dates: start: 20120109
  13. CODALGIN [Concomitant]
     Dosage: 10 MG, UNK
     Route: 048
     Dates: start: 20120107

REACTIONS (4)
  - WEIGHT DECREASED [None]
  - DIZZINESS [None]
  - DEHYDRATION [None]
  - ORAL CANDIDIASIS [None]
